FAERS Safety Report 17931270 (Version 1)
Quarter: 2020Q2

REPORT INFORMATION
  Report Type: Report from Study
  Country: PK (occurrence: PK)
  Receive Date: 20200623
  Receipt Date: 20200623
  Transmission Date: 20200714
  Serious: Yes (Death)
  Sender: FDA-Public Use
  Company Number: NVSC2020PK176664

PATIENT
  Sex: Male
  Weight: 92 kg

DRUGS (1)
  1. GLIVEC [Suspect]
     Active Substance: IMATINIB MESYLATE
     Indication: DERMATOFIBROSARCOMA PROTUBERANS METASTATIC
     Dosage: 400 MG, QD
     Route: 048
     Dates: start: 20170617, end: 20190114

REACTIONS (1)
  - Death [Fatal]
